FAERS Safety Report 6721729-6 (Version None)
Quarter: 2010Q2

REPORT INFORMATION
  Report Type: 
  Country: None (occurrence: None)
  Receive Date: 20100510
  Receipt Date: 20100423
  Transmission Date: 20101027
  Serious: Yes (Hospitalization, Other)
  Sender: FDA-Public Use
  Company Number: 2010S1000103

PATIENT
  Age: 58 Year
  Sex: Female
  Weight: 71.36 kg

DRUGS (14)
  1. PHOSPHOSODA FLAVOR NOT SPECIFIED [Suspect]
     Indication: COLONOSCOPY
     Dosage: PO
     Route: 048
     Dates: start: 20071119, end: 20071119
  2. MAXZIDE [Concomitant]
  3. CENTRUM SILVER /01292501/ [Concomitant]
  4. PREMARIN [Concomitant]
  5. CALCIUM [Concomitant]
  6. HYZAAR /01284801/ [Concomitant]
  7. PROZAC /00724402/ [Concomitant]
  8. NEXIUM [Concomitant]
  9. FERROUS SULFATE TAB [Concomitant]
  10. FISH OIL [Concomitant]
  11. VITAMIN B-12 [Concomitant]
  12. VITAMIN B6 [Concomitant]
  13. VITAMIN A [Concomitant]
  14. DULCOLAX /00064401/ [Concomitant]

REACTIONS (11)
  - ABDOMINAL PAIN [None]
  - ATELECTASIS [None]
  - BLOOD PRESSURE DECREASED [None]
  - DIARRHOEA [None]
  - DIVERTICULITIS [None]
  - NAUSEA [None]
  - PRURITUS [None]
  - PYREXIA [None]
  - RENAL FAILURE ACUTE [None]
  - RENAL TUBULAR NECROSIS [None]
  - VOMITING [None]
